FAERS Safety Report 9225231 (Version 1)
Quarter: 2013Q1

REPORT INFORMATION
  Report Type: Spontaneous
  Country: US (occurrence: None)
  Receive Date: 20120912
  Receipt Date: 20120912
  Transmission Date: 20140127
  Serious: No
  Sender: FDA-Public Use
  Company Number: 2012SP033056

PATIENT
  Age: 45 Year
  Sex: Female

DRUGS (2)
  1. SAPHRIS 5 MG [Suspect]
     Indication: BIPOLAR DISORDER
     Route: 060
     Dates: start: 201205
  2. TOPOMAX [Concomitant]

REACTIONS (2)
  - Weight increased [None]
  - Underdose [None]
